FAERS Safety Report 6219837-1 (Version None)
Quarter: 2009Q2

REPORT INFORMATION
  Report Type: 
  Country: None (occurrence: None)
  Receive Date: 20090609
  Receipt Date: 20090602
  Transmission Date: 20091009
  Serious: Yes (Disabling, Other)
  Sender: FDA-Public Use
  Company Number: CA-ASTRAZENECA-2008UW17494

PATIENT
  Sex: Female

DRUGS (4)
  1. CRESTOR [Suspect]
     Route: 048
     Dates: start: 20080621, end: 20080728
  2. EFFEXOR [Concomitant]
     Route: 048
  3. AMITRIPTLINE HYDROCHLORIDE TAB [Concomitant]
     Route: 048
  4. FIORINAL [Concomitant]
     Route: 048

REACTIONS (8)
  - ARTHROPATHY [None]
  - HYPOAESTHESIA [None]
  - MOVEMENT DISORDER [None]
  - MUSCLE DISORDER [None]
  - NERVE DEGENERATION [None]
  - NEUROPATHY PERIPHERAL [None]
  - PARALYSIS [None]
  - SENSORY LOSS [None]
